FAERS Safety Report 8809203 (Version 1)
Quarter: 2012Q4

REPORT INFORMATION
  Report Type: 
  Country: NG (occurrence: NG)
  Receive Date: 20120926
  Receipt Date: 20120926
  Transmission Date: 20130627
  Serious: Yes (Other)
  Sender: FDA-Public Use
  Company Number: ZA-ASTRAZENECA-2012SE73554

PATIENT
  Age: 32 Year
  Sex: Female
  Weight: 76 kg

DRUGS (1)
  1. ATACAND [Suspect]
     Indication: HYPERTENSION
     Route: 048
     Dates: start: 20120608, end: 20120815

REACTIONS (3)
  - Headache [Recovered/Resolved]
  - Malaise [Recovered/Resolved]
  - Visual impairment [Unknown]
